FAERS Safety Report 8106346-8 (Version None)
Quarter: 2012Q1

REPORT INFORMATION
  Report Type: 
  Country: None (occurrence: None)
  Receive Date: 20120130
  Receipt Date: 20120119
  Transmission Date: 20120608
  Serious: Yes (Other)
  Sender: FDA-Public Use
  Company Number: 2011P1015308

PATIENT
  Sex: Female

DRUGS (1)
  1. ISOSORBIDE MONONITRATE [Suspect]
     Indication: ANGINA PECTORIS
     Dosage: 30 MG;QD;PO
     Route: 048

REACTIONS (3)
  - SURGICAL PROCEDURE REPEATED [None]
  - ANGINA PECTORIS [None]
  - PRODUCT SUBSTITUTION ISSUE [None]
